FAERS Safety Report 9145536 (Version 1)
Quarter: 2013Q1

REPORT INFORMATION
  Report Type: Spontaneous
  Country: US (occurrence: None)
  Receive Date: 20130214
  Receipt Date: 20130214
  Transmission Date: 20140127
  Serious: Yes (Death)
  Sender: FDA-Public Use
  Company Number: 2013020072

PATIENT
  Age: 56 Year
  Sex: Male

DRUGS (6)
  1. CARISOPRODOL (CARISOPRODOL) [Suspect]
  2. COCAINE (BENZOYLMETHYLECGONINE) [Suspect]
  3. OXYCODONE (OXYCODONE) [Suspect]
  4. OLANZAPINE (OLANZAPINE) [Suspect]
  5. TRAZODONE [Suspect]
  6. PAROXETINE (PAROXETINE) [Suspect]

REACTIONS (2)
  - Cardiac arrest [None]
  - Respiratory arrest [None]
